FAERS Safety Report 11931282 (Version 1)
Quarter: 2016Q1

REPORT INFORMATION
  Report Type: Spontaneous
  Country: US (occurrence: US)
  Receive Date: 20160120
  Receipt Date: 20160120
  Transmission Date: 20160526
  Serious: No
  Sender: FDA-Public Use
  Company Number: US-INCYTE CORPORATION-2015IN005066

PATIENT
  Sex: Female

DRUGS (13)
  1. JAKAFI [Suspect]
     Active Substance: RUXOLITINIB
     Indication: MYELOFIBROSIS
     Dosage: 15 MG, BID
     Route: 048
  2. ACYCLOVIR                          /00587301/ [Concomitant]
     Active Substance: ACYCLOVIR
  3. LORAZEPAM. [Concomitant]
     Active Substance: LORAZEPAM
  4. OXYCODONE [Concomitant]
     Active Substance: OXYCODONE
  5. POTASSIUM [Concomitant]
     Active Substance: POTASSIUM
  6. ASPIRIN. [Concomitant]
     Active Substance: ASPIRIN
  7. VITAMIN D3 [Concomitant]
     Active Substance: CHOLECALCIFEROL
  8. TUMS                               /00193601/ [Concomitant]
     Active Substance: CALCIUM CARBONATE\MAGNESIUM CARBONATE\MAGNESIUM TRISILICATE
  9. XALATAN [Concomitant]
     Active Substance: LATANOPROST
  10. AMLODIPINE [Concomitant]
     Active Substance: AMLODIPINE BESYLATE
  11. TRETINOIN. [Concomitant]
     Active Substance: TRETINOIN
  12. TYLENOL [Concomitant]
     Active Substance: ACETAMINOPHEN
  13. LASIX [Concomitant]
     Active Substance: FUROSEMIDE

REACTIONS (1)
  - Pain in extremity [Unknown]
